FAERS Safety Report 9168247 (Version 1)
Quarter: 2013Q1

REPORT INFORMATION
  Report Type: Spontaneous
  Country: US (occurrence: US)
  Receive Date: 20130318
  Receipt Date: 20130318
  Transmission Date: 20140127
  Serious: Yes (Other)
  Sender: FDA-Public Use
  Company Number: US-BAYER-2013-029930

PATIENT
  Age: 37 Year
  Sex: Female

DRUGS (3)
  1. YAZ [Suspect]
     Dosage: UNK
     Dates: start: 2001, end: 200911
  2. YASMIN [Suspect]
     Dosage: UNK
     Dates: start: 2001, end: 200911
  3. OCELLA [Suspect]
     Dosage: UNK
     Dates: start: 2001, end: 200911

REACTIONS (7)
  - Arrhythmia [None]
  - Injury [None]
  - Pain [None]
  - Emotional distress [None]
  - Anxiety [None]
  - Psychological trauma [None]
  - Anhedonia [None]
